FAERS Safety Report 8323372-4 (Version None)
Quarter: 2012Q2

REPORT INFORMATION
  Report Type: 
  Country: None (occurrence: None)
  Receive Date: 20120430
  Receipt Date: 20120423
  Transmission Date: 20120825
  Serious: Yes (Hospitalization, Other)
  Sender: FDA-Public Use
  Company Number: SE-MERCK-1204USA03518

PATIENT
  Age: 73 Year
  Sex: Male

DRUGS (2)
  1. TRUSOPT [Suspect]
     Indication: GLAUCOMA
     Dosage: 20 MG/ML
     Route: 047
     Dates: start: 19700101, end: 20110601
  2. VITAMINS (UNSPECIFIED) [Concomitant]
     Route: 065

REACTIONS (6)
  - HYPERSENSITIVITY [None]
  - NEPHROLITHIASIS [None]
  - FATIGUE [None]
  - CARDIOVASCULAR DISORDER [None]
  - DYSPNOEA [None]
  - NEPHRITIS [None]
